FAERS Safety Report 24283344 (Version 1)
Quarter: 2024Q3

REPORT INFORMATION
  Report Type: Report from Study
  Country: BR (occurrence: None)
  Receive Date: 20240904
  Receipt Date: 20240904
  Transmission Date: 20241016
  Serious: Yes (Other)
  Sender: ASTRAZENECA
  Company Number: 2024A199159

PATIENT
  Sex: Female

DRUGS (8)
  1. DAPAGLIFLOZIN [Suspect]
     Active Substance: DAPAGLIFLOZIN
     Indication: Diabetes mellitus
     Dosage: ONCE
     Route: 048
     Dates: start: 202307
  2. METOPROLOL SUCCINATE [Suspect]
     Active Substance: METOPROLOL SUCCINATE
     Dosage: USE 2 25MG TABLETS50.0MG UNKNOWN
     Route: 048
  3. METFORMIN HYDROCHLORIDE [Concomitant]
     Active Substance: METFORMIN HYDROCHLORIDE
     Dosage: 500.0MG UNKNOWN
  4. CHROMIUM/VITAMIN B12 NOS/NICOTINAMIDE/PHOSPHORUS/VITAMIN K NOS/ERGOCAL [Concomitant]
  5. RETINOL PALMITATE/RUTOSIDE/CHROMIUM/NICOTINAMIDE/NICOTINIC ACID/VANADI [Concomitant]
  6. VITAMIN A-Z [Concomitant]
  7. VITAMIN C [Concomitant]
     Active Substance: ASCORBIC ACID
  8. AMLODIPINE BESILATE/LOSARTAN POTASSIUM [Concomitant]

REACTIONS (10)
  - Infarction [Unknown]
  - Blood glucose increased [Recovered/Resolved]
  - Malaise [Recovered/Resolved]
  - Hyperhidrosis [Recovered/Resolved]
  - Hyperhidrosis [Recovered/Resolved]
  - Asthenia [Unknown]
  - Hypoglycaemia [Unknown]
  - Diabetes mellitus [Unknown]
  - Hypertension [Unknown]
  - Cardiac disorder [Unknown]

NARRATIVE: CASE EVENT DATE: 20240805
